FAERS Safety Report 24253738 (Version 1)
Quarter: 2024Q3

REPORT INFORMATION
  Report Type: Spontaneous
  Country: PL (occurrence: PL)
  Receive Date: 20240827
  Receipt Date: 20240827
  Transmission Date: 20241017
  Serious: Yes (Hospitalization, Other)
  Sender: PFIZER
  Company Number: PL-TAKEDA-2019TUS011802

PATIENT
  Age: 34 Year
  Sex: Male

DRUGS (1)
  1. ADCETRIS [Suspect]
     Active Substance: BRENTUXIMAB VEDOTIN
     Indication: Hodgkin^s disease
     Dosage: 1.8 MG/M2, CYCLIC
     Route: 065
     Dates: start: 201608, end: 201701

REACTIONS (1)
  - Polyneuropathy [Unknown]
